FAERS Safety Report 7492716-8 (Version None)
Quarter: 2011Q2

REPORT INFORMATION
  Report Type: 
  Country: None (occurrence: None)
  Receive Date: 20110519
  Receipt Date: 20110510
  Transmission Date: 20111010
  Serious: Yes (Life-Threatening, Hospitalization)
  Sender: FDA-Public Use
  Company Number: FR-MERCK-1103FRA00007

PATIENT
  Age: 42 Year
  Sex: Male
  Weight: 49 kg

DRUGS (5)
  1. DARUNAVIR [Suspect]
     Indication: HIV INFECTION
     Route: 048
     Dates: start: 20101213, end: 20110222
  2. GABAPENTIN [Concomitant]
     Route: 048
     Dates: start: 19960101
  3. ISENTRESS [Suspect]
     Indication: HIV INFECTION
     Route: 048
     Dates: start: 20101213, end: 20110222
  4. FENOFIBRATE [Concomitant]
     Route: 048
     Dates: start: 20100101
  5. RITONAVIR [Suspect]
     Indication: HIV INFECTION
     Route: 048
     Dates: start: 20101213, end: 20110222

REACTIONS (10)
  - ALANINE AMINOTRANSFERASE INCREASED [None]
  - ASPARTATE AMINOTRANSFERASE INCREASED [None]
  - DERMATITIS EXFOLIATIVE [None]
  - WEIGHT DECREASED [None]
  - PYREXIA [None]
  - EOSINOPHILIA [None]
  - DRUG RASH WITH EOSINOPHILIA AND SYSTEMIC SYMPTOMS [None]
  - HYPONATRAEMIA [None]
  - LYMPHOCYTE MORPHOLOGY ABNORMAL [None]
  - HYPERBILIRUBINAEMIA [None]
